FAERS Safety Report 16853072 (Version 1)
Quarter: 2019Q3

REPORT INFORMATION
  Report Type: Spontaneous
  Country: US (occurrence: US)
  Receive Date: 20190925
  Receipt Date: 20190925
  Transmission Date: 20191005
  Serious: No
  Sender: FDA-Public Use
  Company Number: US-BAUSCH-BL-2019-025859

PATIENT
  Age: 71 Year
  Sex: Female

DRUGS (3)
  1. COUMADIN [Concomitant]
     Active Substance: WARFARIN SODIUM
     Indication: PRODUCT USED FOR UNKNOWN INDICATION
  2. PROLENSA [Suspect]
     Active Substance: BROMFENAC SODIUM
     Indication: POSTOPERATIVE CARE
     Dosage: 1 DROP IN THE OPERATED EYE DAILY
     Route: 047
     Dates: start: 20190722
  3. PROLENSA [Suspect]
     Active Substance: BROMFENAC SODIUM
     Dosage: 1 DROP IN THE OPERATED EYE DAILY
     Route: 047
     Dates: start: 20190819

REACTIONS (2)
  - Product prescribing error [Unknown]
  - Platelet count abnormal [Unknown]

NARRATIVE: CASE EVENT DATE: 201907
